FAERS Safety Report 5529661-0 (Version None)
Quarter: 2007Q4

REPORT INFORMATION
  Report Type: 
  Country: None (occurrence: None)
  Receive Date: 20071129
  Receipt Date: 20071119
  Transmission Date: 20080405
  Serious: Yes (Other)
  Sender: FDA-Public Use
  Company Number: AU-PFIZER INC-2007097704

PATIENT
  Age: 61 Year
  Sex: Male

DRUGS (14)
  1. LYRICA [Suspect]
     Indication: NEURALGIA
     Route: 048
  2. ACTOS [Concomitant]
  3. ALLOPURINOL [Concomitant]
  4. AMARYL [Concomitant]
  5. AVAPRO [Concomitant]
  6. CLOPIDOGREL [Concomitant]
  7. PANAMAX [Concomitant]
  8. ACETAMINOPHEN W/ CODEINE [Concomitant]
  9. FRUSEMIDE [Concomitant]
  10. LEXAPRO [Concomitant]
  11. NEXIUM [Concomitant]
  12. NOVOLOG MIX 70/30 [Concomitant]
  13. OXAZEPAM [Concomitant]
  14. OXYCONTIN [Concomitant]

REACTIONS (1)
  - ATHETOSIS [None]
